FAERS Safety Report 9436516 (Version 2)
Quarter: 2014Q1

REPORT INFORMATION
  Report Type: Spontaneous
  Country: US (occurrence: US)
  Receive Date: 20130802
  Receipt Date: 20140203
  Transmission Date: 20141002
  Serious: No
  Sender: FDA-Public Use
  Company Number: US-OPTIMER-20130036

PATIENT
  Sex: Female

DRUGS (1)
  1. DIFICID [Suspect]
     Indication: CLOSTRIDIAL INFECTION
     Dosage: UNK

REACTIONS (1)
  - Drug ineffective [Recovered/Resolved]
